FAERS Safety Report 25660280 (Version 1)
Quarter: 2025Q3

REPORT INFORMATION
  Report Type: Spontaneous
  Country: US (occurrence: US)
  Receive Date: 20250808
  Receipt Date: 20250808
  Transmission Date: 20251021
  Serious: No
  Sender: CALLIDITAS THERAPEUTICS AB
  Company Number: US-Calliditas-2025CAL02292

PATIENT
  Age: 45 Year
  Sex: Female

DRUGS (20)
  1. TARPEYO [Suspect]
     Active Substance: BUDESONIDE
     Indication: IgA nephropathy
     Route: 048
     Dates: start: 20250326
  2. ASCORBIC ACID [Concomitant]
     Active Substance: ASCORBIC ACID
  3. ASPIRIN [Concomitant]
     Active Substance: ASPIRIN
  4. ATIVAN [Concomitant]
     Active Substance: LORAZEPAM
  5. BRILINTA [Concomitant]
     Active Substance: TICAGRELOR
  6. CALCIUM CHLORIDE [Concomitant]
     Active Substance: CALCIUM CHLORIDE
  7. CANASA [Concomitant]
     Active Substance: MESALAMINE
  8. ENTYVIO [Concomitant]
     Active Substance: VEDOLIZUMAB
  9. HYDROQUINONE [Concomitant]
     Active Substance: HYDROQUINONE
  10. MIRENA [Concomitant]
     Active Substance: LEVONORGESTREL
  11. MULTIVITAMIN WITH FLUORIDE NOS [Concomitant]
     Active Substance: SODIUM FLUORIDE\VITAMINS
  12. NIFEDIPINE [Concomitant]
     Active Substance: NIFEDIPINE
  13. OXYCODONE [Concomitant]
     Active Substance: OXYCODONE
  14. PRISTIQ EXTENDED-RELEASE [Concomitant]
     Active Substance: DESVENLAFAXINE SUCCINATE
  15. PROPRANOLOL [Concomitant]
     Active Substance: PROPRANOLOL HYDROCHLORIDE
  16. TRETINOIN [Concomitant]
     Active Substance: TRETINOIN
  17. VALTREX [Concomitant]
     Active Substance: VALACYCLOVIR HYDROCHLORIDE
  18. VRAYLAR [Concomitant]
     Active Substance: CARIPRAZINE
  19. VYVANSE [Concomitant]
     Active Substance: LISDEXAMFETAMINE DIMESYLATE
  20. WELLBUTRIN SR [Concomitant]
     Active Substance: BUPROPION HYDROCHLORIDE

REACTIONS (3)
  - Dialysis [Unknown]
  - Drug ineffective [Unknown]
  - Disease progression [Unknown]
